FAERS Safety Report 8249108-3 (Version None)
Quarter: 2012Q1

REPORT INFORMATION
  Report Type: 
  Country: None (occurrence: None)
  Receive Date: 20120312
  Receipt Date: 20120228
  Transmission Date: 20120608
  Serious: Yes (Hospitalization)
  Sender: FDA-Public Use
  Company Number: 2012PROUSA01064

PATIENT
  Age: 77 Year
  Sex: Male
  Weight: 86.2 kg

DRUGS (6)
  1. FLAXSEED OIL (LINUM USITATISSIMUM SEED OIL) [Concomitant]
  2. CALCIUM CARBONATE [Concomitant]
  3. ZANTAC [Concomitant]
  4. PROVENGE [Suspect]
     Indication: PROSTATE CANCER METASTATIC
     Dosage: 250 ML, SINGLE, INTRAVENOUS
     Route: 042
     Dates: start: 20120202, end: 20120202
  5. TOPROL-XL [Concomitant]
  6. E VITAMIN E (TOCOPHEROL) [Concomitant]

REACTIONS (1)
  - RENAL FAILURE ACUTE [None]
